FAERS Safety Report 24548832 (Version 1)
Quarter: 2024Q4

REPORT INFORMATION
  Report Type: Spontaneous
  Country: US (occurrence: US)
  Receive Date: 20241025
  Receipt Date: 20241025
  Transmission Date: 20250115
  Serious: No
  Sender: MILLICENT HOLDINGS
  Company Number: US-Millicent Holdings Ltd.-MILL20241204

PATIENT
  Age: 64 Year
  Sex: Female

DRUGS (2)
  1. INTRAROSA [Suspect]
     Active Substance: PRASTERONE
     Indication: Dyspareunia
     Dosage: 6.5 MG
     Route: 067
  2. INTRAROSA [Suspect]
     Active Substance: PRASTERONE
     Dosage: 6.5 MG
     Route: 067
     Dates: start: 202310

REACTIONS (3)
  - Application site discharge [Unknown]
  - Product solubility abnormal [Unknown]
  - Inappropriate schedule of product administration [Unknown]
